FAERS Safety Report 11480627 (Version 2)
Quarter: 2015Q3

REPORT INFORMATION
  Report Type: Spontaneous
  Country: CA (occurrence: CA)
  Receive Date: 20150909
  Receipt Date: 20150910
  Transmission Date: 20151125
  Serious: Yes (Life-Threatening, Hospitalization, Other)
  Sender: FDA-Public Use
  Company Number: CA-JNJFOC-20150821480

PATIENT
  Age: 41 Year
  Sex: Female

DRUGS (2)
  1. RISPERDAL CONSTA [Suspect]
     Active Substance: RISPERIDONE
     Indication: PRODUCT USED FOR UNKNOWN INDICATION
     Route: 042
  2. QUETIAPINE [Concomitant]
     Active Substance: QUETIAPINE
     Indication: PRODUCT USED FOR UNKNOWN INDICATION
     Route: 065

REACTIONS (54)
  - Photosensitivity reaction [Unknown]
  - Excessive cerumen production [Unknown]
  - Dysgeusia [Unknown]
  - Cardiovascular disorder [Unknown]
  - Head discomfort [Unknown]
  - Tourette^s disorder [Unknown]
  - Central nervous system lesion [Unknown]
  - Saccadic eye movement [Unknown]
  - Ocular hyperaemia [Unknown]
  - Anaphylactic reaction [Unknown]
  - Hypoaesthesia [Unknown]
  - Tonsillar disorder [Unknown]
  - Breast enlargement [Unknown]
  - Drug administration error [Unknown]
  - Asthenia [Unknown]
  - Eye swelling [Unknown]
  - Post-traumatic stress disorder [Unknown]
  - Dysphonia [Unknown]
  - Pneumothorax [Unknown]
  - Heart rate irregular [Unknown]
  - White blood cell count increased [Unknown]
  - Visual impairment [Unknown]
  - Memory impairment [Unknown]
  - Red blood cell count decreased [Unknown]
  - Goitre [Unknown]
  - Chest pain [Unknown]
  - Formication [Unknown]
  - CSF test abnormal [Unknown]
  - Sensory loss [Unknown]
  - Pain in extremity [Unknown]
  - Agitation [Unknown]
  - Blood prolactin increased [Unknown]
  - Drug hypersensitivity [Unknown]
  - Tinnitus [Unknown]
  - Pharyngeal oedema [Unknown]
  - Temperature intolerance [Unknown]
  - Micturition disorder [Unknown]
  - Mood swings [Unknown]
  - Spinal pain [Unknown]
  - Hormone level abnormal [Unknown]
  - Confusional state [Unknown]
  - Adnexa uteri pain [Unknown]
  - Dysmenorrhoea [Unknown]
  - Therapeutic response unexpected [Unknown]
  - Eyelid disorder [Recovered/Resolved]
  - Dysacusis [Unknown]
  - Incorrect drug dosage form administered [Unknown]
  - Tremor [Unknown]
  - Malaise [Unknown]
  - Local swelling [Unknown]
  - Burning sensation [Unknown]
  - Feeling abnormal [Unknown]
  - Condition aggravated [Unknown]
  - Dyspnoea [Unknown]

NARRATIVE: CASE EVENT DATE: 201010
